FAERS Safety Report 6642164-5 (Version None)
Quarter: 2010Q1

REPORT INFORMATION
  Report Type: 
  Country: None (occurrence: None)
  Receive Date: 20100319
  Receipt Date: 20100309
  Transmission Date: 20100710
  Serious: Yes (Other)
  Sender: FDA-Public Use
  Company Number: GB-PFIZER INC-2010030304

PATIENT
  Age: 68 Year
  Sex: Female

DRUGS (7)
  1. LIPITOR [Suspect]
     Dosage: 20 MG, 1X/DAY
     Dates: start: 20050101
  2. FLECAINIDE [Concomitant]
     Dosage: 50 MG, UNK
  3. LISINOPRIL [Concomitant]
     Dosage: 10 MG, UNK
  4. SUMATRIPTAN [Concomitant]
     Indication: MIGRAINE
  5. WARFARIN [Concomitant]
  6. RANITIDINE [Concomitant]
  7. MEBEVERINE [Concomitant]

REACTIONS (2)
  - AMNESIA [None]
  - DEPRESSION [None]
